FAERS Safety Report 25987526 (Version 1)
Quarter: 2025Q4

REPORT INFORMATION
  Report Type: Spontaneous
  Country: TW (occurrence: TW)
  Receive Date: 20251103
  Receipt Date: 20251103
  Transmission Date: 20260118
  Serious: No
  Sender: ALKEM
  Company Number: TW-ALKEM LABORATORIES LIMITED-TW-ALKEM-2025-09319

PATIENT
  Age: 82 Year
  Sex: Female

DRUGS (12)
  1. IBUPROFEN [Suspect]
     Active Substance: IBUPROFEN
     Indication: Uveitis
     Dosage: 1200 MILLIGRAM, QD (TABLETS)
     Route: 048
  2. IBUPROFEN [Suspect]
     Active Substance: IBUPROFEN
     Indication: Sarcoidosis
  3. IBUPROFEN [Suspect]
     Active Substance: IBUPROFEN
     Indication: Cystoid macular oedema
  4. PREDNISOLONE [Suspect]
     Active Substance: PREDNISOLONE
     Indication: Uveitis
     Dosage: UNK (EYE DROPS) (SYSTEMIC)
     Route: 065
  5. PREDNISOLONE [Suspect]
     Active Substance: PREDNISOLONE
     Indication: Sarcoidosis
     Dosage: 10 MILLIGRAM, QD (TABLETS)
     Route: 048
  6. PREDNISOLONE [Suspect]
     Active Substance: PREDNISOLONE
     Indication: Cystoid macular oedema
  7. CARTEOLOL [Concomitant]
     Active Substance: CARTEOLOL
     Indication: Uveitis
     Dosage: UNK
     Route: 065
  8. CARTEOLOL [Concomitant]
     Active Substance: CARTEOLOL
     Indication: Sarcoidosis
  9. CARTEOLOL [Concomitant]
     Active Substance: CARTEOLOL
     Indication: Cystoid macular oedema
  10. TRIAMCINOLONE [Concomitant]
     Active Substance: TRIAMCINOLONE
     Indication: Uveitis
     Dosage: UNK (SUB-TENON)
     Route: 065
  11. TRIAMCINOLONE [Concomitant]
     Active Substance: TRIAMCINOLONE
     Indication: Sarcoidosis
  12. TRIAMCINOLONE [Concomitant]
     Active Substance: TRIAMCINOLONE
     Indication: Cystoid macular oedema

REACTIONS (1)
  - Treatment failure [Unknown]
